FAERS Safety Report 5595891-5 (Version None)
Quarter: 2008Q1

REPORT INFORMATION
  Report Type: 
  Country: None (occurrence: None)
  Receive Date: 20080118
  Receipt Date: 20070525
  Transmission Date: 20080703
  Serious: Yes (Death, Other)
  Sender: FDA-Public Use
  Company Number: US-BRISTOL-MYERS SQUIBB COMPANY-13794524

PATIENT
  Sex: Male

DRUGS (1)
  1. IFEX [Suspect]
     Indication: T-CELL LYMPHOMA

REACTIONS (1)
  - COMA [None]
